FAERS Safety Report 16269252 (Version 1)
Quarter: 2019Q2

REPORT INFORMATION
  Report Type: Spontaneous
  Country: FR (occurrence: FR)
  Receive Date: 20190503
  Receipt Date: 20190503
  Transmission Date: 20190711
  Serious: Yes (Hospitalization)
  Sender: FDA-Public Use
  Company Number: FR-ROCHE-2309320

PATIENT
  Sex: Female

DRUGS (1)
  1. PEGASYS [Suspect]
     Active Substance: PEGINTERFERON ALFA-2A
     Indication: ESSENTIAL THROMBOCYTHAEMIA
     Route: 065
     Dates: start: 19930101

REACTIONS (5)
  - Off label use [Unknown]
  - Transient ischaemic attack [Unknown]
  - Intentional product use issue [Unknown]
  - Dry mouth [Not Recovered/Not Resolved]
  - Angular cheilitis [Not Recovered/Not Resolved]
